FAERS Safety Report 10133548 (Version 2)
Quarter: 2014Q2

REPORT INFORMATION
  Report Type: Report from Study
  Country: CA (occurrence: CA)
  Receive Date: 20140428
  Receipt Date: 20140428
  Transmission Date: 20141212
  Serious: Yes (Hospitalization, Other)
  Sender: FDA-Public Use
  Company Number: CA-ABBVIE-12P-028-0960213-00

PATIENT
  Age: 83 Year
  Sex: Male
  Weight: 59.02 kg

DRUGS (1)
  1. LUPRON DEPOT 30 MG [Suspect]
     Indication: PROSTATE CANCER
     Dates: start: 2005, end: 20131221

REACTIONS (8)
  - Concussion [Unknown]
  - Cerebral haemorrhage [Unknown]
  - Delirium [Recovered/Resolved]
  - Head injury [Unknown]
  - Fall [Unknown]
  - Fall [Unknown]
  - Fall [Unknown]
  - Fall [Unknown]
